FAERS Safety Report 24193129 (Version 1)
Quarter: 2024Q3

REPORT INFORMATION
  Report Type: Other
  Country: US (occurrence: US)
  Receive Date: 20240809
  Receipt Date: 20240809
  Transmission Date: 20241017
  Serious: No
  Sender: WOODWARD PHARMA SERVICES
  Company Number: US-WW-2024-e02026P2

PATIENT
  Age: 11 Year
  Sex: Female

DRUGS (1)
  1. FLUCONAZOLE [Suspect]
     Active Substance: FLUCONAZOLE
     Indication: Coccidioidomycosis
     Dosage: 400 MG, QD
     Route: 048

REACTIONS (2)
  - Paronychia [Recovered/Resolved]
  - Nail dystrophy [Recovered/Resolved]
